FAERS Safety Report 4433052-3 (Version None)
Quarter: 2004Q3

REPORT INFORMATION
  Report Type: 
  Country: None (occurrence: None)
  Receive Date: 20040721
  Receipt Date: 20030630
  Transmission Date: 20050211
  Serious: Yes (Other)
  Sender: FDA-Public Use
  Company Number: WAES0307USA00008

PATIENT
  Age: 49 Year
  Sex: Male
  Weight: 104.3273 kg

DRUGS (5)
  1. VIOXX [Suspect]
     Indication: BACK PAIN
     Dosage: 25 TABLET/ DAILY/ PO
     Route: 048
     Dates: start: 20030711, end: 20030711
  2. VIOXX [Suspect]
     Indication: PAIN
     Dosage: 25 TABLET/ DAILY/ PO
     Route: 048
     Dates: start: 20030711, end: 20030711
  3. VIOXX [Suspect]
     Dosage: 25 TABLET/ DAILY/ PO
     Route: 048
     Dates: start: 20030713, end: 20030713
  4. ALLEGRA [Concomitant]
  5. FLONASE [Concomitant]

REACTIONS (1)
  - ANGIONEUROTIC OEDEMA [None]
